FAERS Safety Report 7401503-8 (Version None)
Quarter: 2011Q2

REPORT INFORMATION
  Report Type: 
  Country: None (occurrence: None)
  Receive Date: 20110408
  Receipt Date: 20110325
  Transmission Date: 20111010
  Serious: Yes (Hospitalization, Other)
  Sender: FDA-Public Use
  Company Number: FR-AMGEN-FRASP2011005607

PATIENT
  Age: 60 Year
  Sex: Female

DRUGS (7)
  1. ENBREL [Suspect]
     Dosage: UNK
  2. LEVOTHYROX [Concomitant]
     Indication: HYPOTHYROIDISM
     Dosage: UNK
  3. CORTANCYL [Concomitant]
     Dosage: UNK
  4. ENBREL [Suspect]
     Indication: RHEUMATOID ARTHRITIS
     Dosage: 50 MG, WEEKLY
     Route: 058
     Dates: start: 20100722, end: 20100901
  5. METOJECT                           /00113801/ [Concomitant]
     Dosage: UNK
  6. ENBREL [Suspect]
     Dosage: 25 MG
     Dates: start: 20110101
  7. SPECIAFOLDINE [Concomitant]
     Dosage: UNK

REACTIONS (6)
  - INCORRECT DOSE ADMINISTERED [None]
  - HEPATITIS [None]
  - GAMMA-GLUTAMYLTRANSFERASE INCREASED [None]
  - PAIN [None]
  - ACCIDENTAL OVERDOSE [None]
  - CYTOLYTIC HEPATITIS [None]
